FAERS Safety Report 7226909-1 (Version None)
Quarter: 2011Q1

REPORT INFORMATION
  Report Type: 
  Country: None (occurrence: None)
  Receive Date: 20110105
  Receipt Date: 20101224
  Transmission Date: 20110831
  Serious: Yes (Hospitalization)
  Sender: FDA-Public Use
  Company Number: 024548

PATIENT
  Sex: Female

DRUGS (8)
  1. CERTOLIZUMAB PEGOL (CERTOLIZUMAB PEGOL) [Suspect]
     Indication: RHEUMATOID ARTHRITIS
     Dosage: SEE IMAGE: SUBCUTANEOUS
     Route: 058
     Dates: start: 20090825
  2. BUFEXAMAC [Concomitant]
  3. ALENDRONATE SODIUM [Concomitant]
  4. ALFACALICIDOL [Concomitant]
  5. METHOTREXATE [Concomitant]
  6. FELBINAC [Concomitant]
  7. HYALURONATE SODIUM [Concomitant]
  8. FOLIC ACID [Concomitant]

REACTIONS (3)
  - GASTROENTERITIS [None]
  - DIZZINESS [None]
  - ABDOMINAL DISTENSION [None]
